FAERS Safety Report 15485367 (Version 3)
Quarter: 2018Q4

REPORT INFORMATION
  Report Type: Spontaneous
  Country: US (occurrence: US)
  Receive Date: 20181010
  Receipt Date: 20181115
  Transmission Date: 20190205
  Serious: No
  Sender: FDA-Public Use
  Company Number: US-ACTELION-A-US2018-178739

PATIENT
  Age: 32 Year
  Sex: Male
  Weight: 53.52 kg

DRUGS (4)
  1. SILDENAFIL CITRATE. [Concomitant]
     Active Substance: SILDENAFIL CITRATE
  2. TRACLEER [Suspect]
     Active Substance: BOSENTAN
     Indication: PULMONARY HYPERTENSION
     Dosage: 125 MG, BID
     Route: 048
  3. UPTRAVI [Suspect]
     Active Substance: SELEXIPAG
     Indication: PULMONARY HYPERTENSION
     Dosage: 200 MG, BID
     Route: 048
     Dates: start: 20180831
  4. UPTRAVI [Suspect]
     Active Substance: SELEXIPAG
     Dosage: 400 MCG, BID
     Route: 048
     Dates: start: 20180910

REACTIONS (12)
  - Cough [Unknown]
  - Headache [Unknown]
  - Diarrhoea [Unknown]
  - Nasopharyngitis [Unknown]
  - Secretion discharge [Unknown]
  - Ocular hyperaemia [Unknown]
  - Sneezing [Unknown]
  - Abdominal discomfort [Unknown]
  - Hypersensitivity [Unknown]
  - Dysphonia [Unknown]
  - Fatigue [Unknown]
  - Sinus congestion [Unknown]

NARRATIVE: CASE EVENT DATE: 20180929
